FAERS Safety Report 5638860-9 (Version None)
Quarter: 2008Q1

REPORT INFORMATION
  Report Type: 
  Country: None (occurrence: None)
  Receive Date: 20080226
  Receipt Date: 20080212
  Transmission Date: 20080703
  Serious: Yes (Other)
  Sender: FDA-Public Use
  Company Number: US-KINGPHARMUSA00001-K200800191

PATIENT

DRUGS (7)
  1. ALTACE [Suspect]
  2. PLAVIX [Suspect]
  3. ASPIRIN [Suspect]
  4. CARDICOR [Suspect]
  5. PREGABALIN [Suspect]
     Indication: TRIGEMINAL NEURALGIA
     Dosage: 600 MG, QD
     Dates: start: 20060101
  6. SIMVASTATIN [Suspect]
  7. CLOPIDOGREL [Suspect]

REACTIONS (2)
  - DRUG INTERACTION [None]
  - TRIGEMINAL NEURALGIA [None]
